FAERS Safety Report 18846009 (Version 1)
Quarter: 2021Q1

REPORT INFORMATION
  Report Type: Spontaneous
  Country: US (occurrence: US)
  Receive Date: 20210204
  Receipt Date: 20210204
  Transmission Date: 20210419
  Serious: Yes (Hospitalization)
  Sender: FDA-Public Use
  Company Number: None

PATIENT
  Age: 94 Year
  Sex: Male
  Weight: 80 kg

DRUGS (2)
  1. BACTRIM DS [Suspect]
     Active Substance: SULFAMETHOXAZOLE\TRIMETHOPRIM
     Indication: MUSCULOSKELETAL DISORDER
  2. LEVOFLOXACIN. [Suspect]
     Active Substance: LEVOFLOXACIN
     Indication: MUSCULOSKELETAL DISORDER
     Route: 048

REACTIONS (7)
  - Transaminases increased [None]
  - Drug hypersensitivity [None]
  - Eosinophilia [None]
  - Mucosal disorder [None]
  - Lip haemorrhage [None]
  - Drug reaction with eosinophilia and systemic symptoms [None]
  - Eye disorder [None]

NARRATIVE: CASE EVENT DATE: 20210115
